FAERS Safety Report 20734647 (Version 1)
Quarter: 2022Q2

REPORT INFORMATION
  Report Type: Spontaneous
  Country: US (occurrence: None)
  Receive Date: 20220420
  Receipt Date: 20220420
  Transmission Date: 20220721
  Serious: Yes (Hospitalization)
  Sender: FDA-Public Use
  Company Number: None

PATIENT
  Sex: Female

DRUGS (11)
  1. ENBREL [Suspect]
     Active Substance: ETANERCEPT
     Indication: Rheumatoid arthritis
     Route: 058
     Dates: start: 20151014
  2. ASPIRIN CHW [Concomitant]
  3. COUMADIN [Concomitant]
     Active Substance: WARFARIN SODIUM
  4. FOLIC ACID [Concomitant]
     Active Substance: FOLIC ACID
  5. HYDROCHLOROTHIAZIDE\TRIAMTERENE [Concomitant]
     Active Substance: HYDROCHLOROTHIAZIDE\TRIAMTERENE
  6. LISINOPRIL [Concomitant]
     Active Substance: LISINOPRIL
  7. METHOTREXATE [Concomitant]
  8. METOPROL TAR [Concomitant]
  9. METOPROLOL TAB [Concomitant]
  10. VITAMIN D [Concomitant]
     Active Substance: VITAMIN D NOS
  11. WARFARIN [Concomitant]
     Active Substance: WARFARIN

REACTIONS (3)
  - Atrial fibrillation [None]
  - Thrombosis [None]
  - Swelling [None]
